FAERS Safety Report 21742179 (Version 1)
Quarter: 2022Q4

REPORT INFORMATION
  Report Type: Spontaneous
  Country: US (occurrence: US)
  Receive Date: 20221216
  Receipt Date: 20221216
  Transmission Date: 20230112
  Serious: Yes (Other)
  Sender: FDA-Public Use
  Company Number: US-AMERICAN REGENT INC-2022003524

PATIENT
  Sex: Male

DRUGS (1)
  1. OLANZAPINE [Suspect]
     Active Substance: OLANZAPINE
     Indication: Product used for unknown indication
     Dosage: UNK

REACTIONS (5)
  - Intentional product misuse [Unknown]
  - Physical assault [Unknown]
  - Victim of sexual abuse [Unknown]
  - Ill-defined disorder [Unknown]
  - Loss of consciousness [Unknown]
